FAERS Safety Report 6491480-9 (Version None)
Quarter: 2009Q4

REPORT INFORMATION
  Report Type: 
  Country: None (occurrence: None)
  Receive Date: 20091211
  Receipt Date: 20091204
  Transmission Date: 20100525
  Serious: Yes (Hospitalization, Other)
  Sender: FDA-Public Use
  Company Number: US-ALLERGAN-0914723US

PATIENT
  Age: 66 Year
  Sex: Female

DRUGS (2)
  1. BOTOX COSMETIC [Suspect]
     Indication: SKIN WRINKLING
     Dosage: 27 UNITS, SINGLE
     Route: 030
     Dates: start: 20090831, end: 20090831
  2. TOPROL-XL [Concomitant]
     Indication: ARRHYTHMIA

REACTIONS (10)
  - ASTHENIA [None]
  - CYSTITIS [None]
  - DYSPHAGIA [None]
  - EYELID PTOSIS [None]
  - HEADACHE [None]
  - HYPOTENSION [None]
  - INJECTION SITE PAIN [None]
  - NAUSEA [None]
  - PERIORBITAL OEDEMA [None]
  - URINARY TRACT INFECTION [None]
